FAERS Safety Report 8814665 (Version 1)
Quarter: 2012Q4

REPORT INFORMATION
  Report Type: Spontaneous
  Country: US (occurrence: None)
  Receive Date: 20120926
  Receipt Date: 20120926
  Transmission Date: 20130627
  Serious: Yes (Hospitalization)
  Sender: FDA-Public Use
  Company Number: ALK-2012-000891

PATIENT
  Age: 48 Year
  Sex: Female
  Weight: 55.8 kg

DRUGS (11)
  1. VIVITROL [Suspect]
     Indication: ALCOHOLISM
     Route: 030
     Dates: start: 20110124, end: 20110124
  2. VIVITROL [Suspect]
     Indication: ALCOHOLISM
     Route: 030
     Dates: start: 20120501
  3. PROZAC (FLUOXETINE HYDROCHLORIDE) [Concomitant]
  4. TOPIRAMATE (TOPIRAMATE) [Concomitant]
  5. TRAZODONE (TRAZODONE) [Concomitant]
  6. FOLIC ACID (FOLIC ACID) [Concomitant]
  7. OMEPRAZOLE (OMEPRAZOLE) [Concomitant]
  8. THIAMINE (THIAMINE) [Concomitant]
  9. IBUPROFEN (IBUPROFEN) [Concomitant]
  10. SENNA (SENNA ALEXANDRINA) [Concomitant]
  11. MULTIVITAMI /00097801/ (ASCORBIC ACID, CALCIUM PANTOTHENATE, ERGOCALCIFEROL, NICOTINAMIDE, PYRIDOXINE HYDROCHLORIDE, RETINOO, RIBOFLAVIN, THIAMINE HYDROCHLORIDE) [Concomitant]

REACTIONS (2)
  - Pancreatic pseudocyst [None]
  - Pain [None]
